FAERS Safety Report 7557349-3 (Version None)
Quarter: 2011Q2

REPORT INFORMATION
  Report Type: 
  Country: None (occurrence: None)
  Receive Date: 20110620
  Receipt Date: 20110607
  Transmission Date: 20111010
  Serious: Yes (Other)
  Sender: FDA-Public Use
  Company Number: PHHY2011AU50553

PATIENT
  Sex: Female

DRUGS (1)
  1. ZOMETA [Suspect]
     Dates: start: 20101208

REACTIONS (7)
  - RASH [None]
  - ARTHRALGIA [None]
  - SKIN LESION [None]
  - NAUSEA [None]
  - BEDRIDDEN [None]
  - MYALGIA [None]
  - LYMPHOEDEMA [None]
